FAERS Safety Report 21528895 (Version 1)
Quarter: 2022Q4

REPORT INFORMATION
  Report Type: Spontaneous
  Country: SE (occurrence: SE)
  Receive Date: 20221031
  Receipt Date: 20221031
  Transmission Date: 20230112
  Serious: Yes (Death, Hospitalization)
  Sender: FDA-Public Use
  Company Number: SE-MYLANLABS-2022M1118763

PATIENT
  Age: 15 Hour
  Sex: Male

DRUGS (8)
  1. ATROPINE [Suspect]
     Active Substance: ATROPINE
     Indication: Circulatory collapse
     Dosage: UNK
     Route: 065
  2. EPINEPHRINE [Suspect]
     Active Substance: EPINEPHRINE
     Indication: Circulatory collapse
     Dosage: UNK
     Route: 065
  3. DOPAMINE [Suspect]
     Active Substance: DOPAMINE HYDROCHLORIDE
     Indication: Circulatory collapse
     Dosage: UNK
     Route: 065
  4. DOBUTAMINE [Suspect]
     Active Substance: DOBUTAMINE HYDROCHLORIDE
     Indication: Circulatory collapse
     Dosage: UNK
     Route: 065
  5. SALINE [Suspect]
     Active Substance: SODIUM CHLORIDE
     Indication: Circulatory collapse
     Dosage: UNK; BOLUS
     Route: 042
  6. CLONIDINE [Concomitant]
     Active Substance: CLONIDINE
     Indication: Sedative therapy
     Dosage: 0.35 MICROGRAM/KILOGRAM, QH
     Route: 065
  7. CLONIDINE [Concomitant]
     Active Substance: CLONIDINE
     Dosage: 0.5 MICROGRAM/KILOGRAM, QH
     Route: 065
  8. MIDAZOLAM [Concomitant]
     Active Substance: MIDAZOLAM
     Indication: Sedative therapy
     Dosage: 50 MICROGRAM/KILOGRAM; BOLUS
     Route: 042

REACTIONS (1)
  - Drug ineffective [Fatal]
